FAERS Safety Report 12108836 (Version 1)
Quarter: 2016Q1

REPORT INFORMATION
  Report Type: Spontaneous
  Country: US (occurrence: None)
  Receive Date: 20160222
  Receipt Date: 20160222
  Transmission Date: 20160526
  Serious: Yes (Disabling, Other)
  Sender: FDA-Public Use
  Company Number: None

PATIENT
  Age: 63 Year
  Sex: Female
  Weight: 129.28 kg

DRUGS (8)
  1. VIIBRYD [Concomitant]
     Active Substance: VILAZODONE HYDROCHLORIDE
  2. MAGNESIUM [Concomitant]
     Active Substance: MAGNESIUM
  3. DEXILANT [Concomitant]
     Active Substance: DEXLANSOPRAZOLE
  4. VIIBRYD [Suspect]
     Active Substance: VILAZODONE HYDROCHLORIDE
     Indication: DEPRESSION
     Dosage: TAKEN BY MOUTH
  5. SIMVASTATIN. [Concomitant]
     Active Substance: SIMVASTATIN
  6. IPRATROPIUM [Concomitant]
     Active Substance: IPRATROPIUM
  7. CROMOLYN [Concomitant]
     Active Substance: CROMOLYN
  8. CALCIUM [Concomitant]
     Active Substance: CALCIUM

REACTIONS (4)
  - Nightmare [None]
  - Therapy change [None]
  - Drug dose omission [None]
  - Withdrawal syndrome [None]

NARRATIVE: CASE EVENT DATE: 20160221
